FAERS Safety Report 5089745-0 (Version None)
Quarter: 2006Q3

REPORT INFORMATION
  Report Type: 
  Country: None (occurrence: None)
  Receive Date: 20060828
  Receipt Date: 20060817
  Transmission Date: 20061208
  Serious: Yes (Hospitalization)
  Sender: FDA-Public Use
  Company Number: AU-BRISTOL-MYERS SQUIBB COMPANY-13482013

PATIENT
  Sex: Female

DRUGS (6)
  1. KARVEZIDE TABS 300MG/12.5MG [Suspect]
     Dosage: 300MG/ 12.5 MG TAKEN IN THE MORNING
     Route: 048
     Dates: start: 20060101
  2. KARVEA TABS 150 MG [Suspect]
     Dosage: TAKEN AT NIGHT
     Route: 048
     Dates: start: 20020101
  3. LIPITOR [Concomitant]
  4. ASPIRIN [Concomitant]
  5. DIAMICRON [Concomitant]
  6. AVANDIA [Concomitant]

REACTIONS (1)
  - RENAL IMPAIRMENT [None]
